FAERS Safety Report 8965360 (Version 1)
Quarter: 2012Q4

REPORT INFORMATION
  Report Type: 
  Country: US (occurrence: US)
  Receive Date: 20121213
  Receipt Date: 20121213
  Transmission Date: 20130627
  Serious: No
  Sender: FDA-Public Use
  Company Number: US-009507513-1212USA003006

PATIENT
  Age: 64 Year
  Sex: Female

DRUGS (1)
  1. ZIOPTAN [Suspect]
     Indication: INTRAOCULAR PRESSURE TEST
     Dosage: One drop per eye/ once daily
     Route: 031
     Dates: start: 20121203, end: 20121205

REACTIONS (3)
  - Eye pain [Recovering/Resolving]
  - Photophobia [Recovering/Resolving]
  - Eye haemorrhage [Recovering/Resolving]
